FAERS Safety Report 19084839 (Version 1)
Quarter: 2021Q2

REPORT INFORMATION
  Report Type: Spontaneous
  Country: US (occurrence: US)
  Receive Date: 20210401
  Receipt Date: 20210401
  Transmission Date: 20210717
  Serious: No
  Sender: FDA-Public Use
  Company Number: US-ASTRAZENECA-2021A109818

PATIENT
  Age: 35 Year
  Sex: Female

DRUGS (5)
  1. ELDERBERRY [Concomitant]
     Active Substance: HERBALS
     Route: 065
  2. VITAMIN C [Concomitant]
     Active Substance: ASCORBIC ACID
     Route: 065
  3. ALBUTEROL. [Concomitant]
     Active Substance: ALBUTEROL
     Route: 065
  4. BREZTRI AEROSPHERE [Suspect]
     Active Substance: BUDESONIDE\FORMOTEROL\GLYCOPYRRONIUM
     Indication: ASTHMA
     Dosage: 160/9/4.8 MCG ,TWO TIMES A DAY
     Route: 055
     Dates: start: 202101, end: 20210302
  5. BREZTRI AEROSPHERE [Suspect]
     Active Substance: BUDESONIDE\FORMOTEROL\GLYCOPYRRONIUM
     Indication: COUGH
     Dosage: 160/9/4.8 MCG ,TWO TIMES A DAY
     Route: 055
     Dates: start: 202101, end: 20210302

REACTIONS (3)
  - Feeling jittery [Unknown]
  - Impaired driving ability [Unknown]
  - Dizziness [Unknown]
